FAERS Safety Report 9288223 (Version 2)
Quarter: 2013Q2

REPORT INFORMATION
  Report Type: Spontaneous
  Country: JP (occurrence: None)
  Receive Date: 20130510
  Receipt Date: 20130515
  Transmission Date: 20140414
  Serious: Yes (Death, Hospitalization, Other)
  Sender: FDA-Public Use
  Company Number: ADR-2013-00775

PATIENT
  Sex: Female

DRUGS (5)
  1. GABALON [Suspect]
     Dosage: 0.2%, SIMPLE CONTINUOUS
  2. TAKEPRON [Concomitant]
  3. ALBUMIN [Concomitant]
  4. EDARAVONE [Concomitant]
  5. FINIBAX [Concomitant]

REACTIONS (3)
  - General physical health deterioration [None]
  - Multi-organ failure [None]
  - Pancreatic carcinoma [None]
